FAERS Safety Report 7335403 (Version 4)
Quarter: 2013Q3

REPORT INFORMATION
  Report Type: Spontaneous
  Country: US (occurrence: US)
  Receive Date: 20100329
  Receipt Date: 20130828
  Transmission Date: 20140515
  Serious: Yes (Hospitalization, Other)
  Sender: FDA-Public Use
  Company Number: US-ROCHE-659111

PATIENT
  Age: 15 Year
  Sex: Male
  Weight: 59.9 kg

DRUGS (1)
  1. ACCUTANE [Suspect]
     Indication: ACNE CYSTIC
     Route: 065
     Dates: start: 19990623, end: 19991022

REACTIONS (13)
  - Crohn^s disease [Unknown]
  - Intestinal perforation [Unknown]
  - Inflammatory bowel disease [Unknown]
  - Depression [Unknown]
  - Intestinal obstruction [Unknown]
  - Ileal stenosis [Unknown]
  - Intestinal haemorrhage [Unknown]
  - Photosensitivity reaction [Unknown]
  - Mood swings [Unknown]
  - Arthralgia [Unknown]
  - Hepatic enzyme increased [Unknown]
  - Blood cholesterol increased [Unknown]
  - Joint injury [Unknown]
